FAERS Safety Report 7052046-5 (Version None)
Quarter: 2010Q4

REPORT INFORMATION
  Report Type: 
  Country: None (occurrence: None)
  Receive Date: 20101019
  Receipt Date: 20101011
  Transmission Date: 20110411
  Serious: Yes (Hospitalization)
  Sender: FDA-Public Use
  Company Number: US-BAYER-201031266NA

PATIENT
  Age: 59 Year
  Sex: Female

DRUGS (7)
  1. BETASERON [Suspect]
     Indication: MULTIPLE SCLEROSIS
     Route: 065
     Dates: start: 19930101
  2. FOSAMAX [Concomitant]
  3. VITAMIN B-12 [Concomitant]
  4. LYRICA [Concomitant]
  5. VITAMIN D3 [Concomitant]
  6. CALCIUM [Concomitant]
  7. IBUPROFEN [Concomitant]

REACTIONS (10)
  - ASTHENIA [None]
  - FEELING HOT [None]
  - HYPOTENSION [None]
  - INFLUENZA LIKE ILLNESS [None]
  - MALAISE [None]
  - MUSCLE SPASMS [None]
  - PAIN [None]
  - PYREXIA [None]
  - SOMNOLENCE [None]
  - UNRESPONSIVE TO STIMULI [None]
